FAERS Safety Report 21125818 (Version 1)
Quarter: 2022Q3

REPORT INFORMATION
  Report Type: Spontaneous
  Country: US (occurrence: None)
  Receive Date: 20220723
  Receipt Date: 20220723
  Transmission Date: 20221027
  Serious: Yes (Other)
  Sender: FDA-Public Use
  Company Number: None

PATIENT
  Age: 43 Year
  Sex: Female
  Weight: 42.75 kg

DRUGS (1)
  1. MAGNESIUM CITRATE [Suspect]
     Active Substance: MAGNESIUM CITRATE
     Indication: Surgery
     Dates: start: 20220718, end: 20220723

REACTIONS (2)
  - Recalled product administered [None]
  - Abdominal pain upper [None]

NARRATIVE: CASE EVENT DATE: 20220718
